FAERS Safety Report 13634903 (Version 1)
Quarter: 2017Q2

REPORT INFORMATION
  Report Type: Spontaneous
  Country: US (occurrence: US)
  Receive Date: 20170531
  Receipt Date: 20170531
  Transmission Date: 20170830
  Serious: No
  Sender: FDA-Public Use
  Company Number: US-ASTELLAS-1667003

PATIENT
  Sex: Female

DRUGS (6)
  1. COLACE [Concomitant]
     Active Substance: DOCUSATE SODIUM
  2. LASIX [Concomitant]
     Active Substance: FUROSEMIDE
  3. TARCEVA [Suspect]
     Active Substance: ERLOTINIB HYDROCHLORIDE
     Indication: LUNG NEOPLASM MALIGNANT
     Route: 048
     Dates: start: 20151030
  4. FOLIC ACID. [Concomitant]
     Active Substance: FOLIC ACID
  5. ALLOPURINOL. [Concomitant]
     Active Substance: ALLOPURINOL
     Route: 065
  6. AMLODIPINE [Concomitant]
     Active Substance: AMLODIPINE BESYLATE

REACTIONS (1)
  - Diarrhoea [Unknown]
